FAERS Safety Report 10351357 (Version 1)
Quarter: 2014Q3

REPORT INFORMATION
  Report Type: Spontaneous
  Country: US (occurrence: US)
  Receive Date: 20140730
  Receipt Date: 20140730
  Transmission Date: 20150326
  Serious: Yes (Life-Threatening, Hospitalization)
  Sender: FDA-Public Use
  Company Number: US-PFIZER INC-2014211051

PATIENT
  Age: 52 Year
  Sex: Female

DRUGS (2)
  1. CITALOPRAM [Suspect]
     Active Substance: CITALOPRAM HYDROBROMIDE
     Dosage: UNK
  2. METAXALONE. [Suspect]
     Active Substance: METAXALONE
     Dosage: 800 MG, 2X/DAY
     Route: 048

REACTIONS (1)
  - Serotonin syndrome [Recovered/Resolved]
